FAERS Safety Report 15801784 (Version 1)
Quarter: 2019Q1

REPORT INFORMATION
  Report Type: Spontaneous
  Country: US (occurrence: US)
  Receive Date: 20190109
  Receipt Date: 20190109
  Transmission Date: 20190417
  Serious: No
  Sender: FDA-Public Use
  Company Number: US-PFIZER INC-2018368815

PATIENT
  Age: 11 Year
  Sex: Male
  Weight: 30.84 kg

DRUGS (3)
  1. GENOTROPIN [Suspect]
     Active Substance: SOMATROPIN
     Dosage: 0.9 MG, 1X/DAY [ONCE AT NIGHT GIVEN IN HIS LEG]
     Dates: start: 2018
  2. GENOTROPIN [Suspect]
     Active Substance: SOMATROPIN
     Indication: GROWTH HORMONE DEFICIENCY
     Dosage: 0.7 MG, DAILY
     Dates: start: 20151025
  3. GENOTROPIN [Suspect]
     Active Substance: SOMATROPIN
     Dosage: 0.9 MG, DAILY
     Dates: start: 201808

REACTIONS (6)
  - Wrong technique in device usage process [Unknown]
  - Blood alkaline phosphatase increased [Unknown]
  - Thyroxine free decreased [Unknown]
  - Headache [Unknown]
  - Product dose omission [Unknown]
  - Blood glucose increased [Unknown]

NARRATIVE: CASE EVENT DATE: 20180913
